FAERS Safety Report 12971631 (Version 3)
Quarter: 2016Q4

REPORT INFORMATION
  Report Type: Spontaneous
  Country: US (occurrence: US)
  Receive Date: 20161123
  Receipt Date: 20161226
  Transmission Date: 20170207
  Serious: Yes (Hospitalization)
  Sender: FDA-Public Use
  Company Number: US-LUNDBECK-DKLU2022931

PATIENT
  Age: 34 Year
  Sex: Male

DRUGS (3)
  1. NORTHERA [Suspect]
     Active Substance: DROXIDOPA
     Route: 065
     Dates: start: 20161022
  2. NORTHERA [Suspect]
     Active Substance: DROXIDOPA
     Indication: AUTONOMIC NEUROPATHY
     Dosage: SCHEDULE B
     Route: 065
  3. NORTHERA [Suspect]
     Active Substance: DROXIDOPA
     Route: 065
     Dates: start: 20161026

REACTIONS (8)
  - Chest pain [Unknown]
  - Dizziness [Unknown]
  - Orthostatic hypotension [Unknown]
  - Dizziness postural [Unknown]
  - Vomiting [Unknown]
  - Syncope [Unknown]
  - Muscular weakness [Unknown]
  - Early satiety [Unknown]

NARRATIVE: CASE EVENT DATE: 20161116
